FAERS Safety Report 12212016 (Version 1)
Quarter: 2016Q1

REPORT INFORMATION
  Report Type: Report from Study
  Country: CL (occurrence: CL)
  Receive Date: 20160325
  Receipt Date: 20160325
  Transmission Date: 20160526
  Serious: Yes (Death)
  Sender: FDA-Public Use
  Company Number: PHHY2016CL039963

PATIENT
  Age: 48 Year
  Sex: Female
  Weight: 48 kg

DRUGS (1)
  1. LDK378 [Suspect]
     Active Substance: CERITINIB
     Indication: NON-SMALL CELL LUNG CANCER METASTATIC
     Dosage: 450 MG, QD
     Route: 048
     Dates: start: 20150204

REACTIONS (1)
  - Death [Fatal]

NARRATIVE: CASE EVENT DATE: 20151212
